FAERS Safety Report 23213642 (Version 1)
Quarter: 2023Q4

REPORT INFORMATION
  Report Type: Report from Study
  Country: US (occurrence: US)
  Receive Date: 20231121
  Receipt Date: 20231121
  Transmission Date: 20240110
  Serious: Yes (Other)
  Sender: FDA-Public Use
  Company Number: US-ABBVIE-5498317

PATIENT
  Sex: Male

DRUGS (1)
  1. HUMIRA [Suspect]
     Active Substance: ADALIMUMAB
     Indication: Rheumatoid arthritis
     Dosage: CITRATE FREE FORM STRENGTH: 40MG
     Route: 058

REACTIONS (5)
  - Spinal osteoarthritis [Unknown]
  - Computerised tomogram thorax abnormal [Unknown]
  - Dermatitis contact [Unknown]
  - Therapeutic response shortened [Unknown]
  - Lung disorder [Unknown]
